FAERS Safety Report 5235352-6 (Version None)
Quarter: 2007Q1

REPORT INFORMATION
  Report Type: 
  Country: None (occurrence: None)
  Receive Date: 20070207
  Receipt Date: 20070207
  Transmission Date: 20070707
  Serious: No
  Sender: FDA-Public Use
  Company Number: None

PATIENT
  Age: 62 Year
  Sex: Female
  Weight: 69.4003 kg

DRUGS (7)
  1. TRAMADOL HCL [Suspect]
     Indication: ARTHRITIS
     Dosage: ONE TABLET THREE TIMES DAY PO
     Route: 048
     Dates: start: 20070102, end: 20070126
  2. HYDROXYZIENE HCL [Concomitant]
  3. LIDOCAINE [Concomitant]
  4. SPIRIVA [Concomitant]
  5. LYRICA [Concomitant]
  6. ESTRADIOL [Concomitant]
  7. NEXIUM [Concomitant]

REACTIONS (2)
  - CONVULSION [None]
  - DYSKINESIA [None]
